FAERS Safety Report 4856251-5 (Version None)
Quarter: 2005Q4

REPORT INFORMATION
  Report Type: 
  Country: None (occurrence: None)
  Receive Date: 20051215
  Receipt Date: 20051201
  Transmission Date: 20060501
  Serious: Yes (Death)
  Sender: FDA-Public Use
  Company Number: 12996

PATIENT
  Age: 80 Year
  Sex: Male

DRUGS (7)
  1. AMIODARONE [Suspect]
     Indication: ATRIAL FIBRILLATION
  2. BENDROFLUAZIDE [Concomitant]
  3. LISINOPRIL [Concomitant]
  4. GLICLAZIDE [Concomitant]
  5. GLYCERYL TRINITRATE [Concomitant]
  6. DICLOFENAC [Concomitant]
  7. CO-DYDRAMOL [Concomitant]

REACTIONS (21)
  - ACIDOSIS [None]
  - ANURIA [None]
  - ARTERIOSCLEROSIS CORONARY ARTERY [None]
  - BRADYCARDIA [None]
  - BRAIN HYPOXIA [None]
  - CARDIAC ARREST [None]
  - ELECTROCARDIOGRAM ABNORMAL [None]
  - ELECTROCARDIOGRAM QT PROLONGED [None]
  - FALL [None]
  - HAEMORRHAGIC CEREBRAL INFARCTION [None]
  - HEAD INJURY [None]
  - HYPERTENSION [None]
  - HYPOKALAEMIA [None]
  - HYPOTENSION [None]
  - INFARCTION [None]
  - LOSS OF CONSCIOUSNESS [None]
  - MYOCARDIAL INFARCTION [None]
  - RENAL INFARCT [None]
  - SKIN LACERATION [None]
  - TORSADE DE POINTES [None]
  - VENTRICULAR FIBRILLATION [None]
